FAERS Safety Report 4334757-5 (Version None)
Quarter: 2004Q2

REPORT INFORMATION
  Report Type: 
  Country: None (occurrence: None)
  Receive Date: 20040408
  Receipt Date: 20031202
  Transmission Date: 20050107
  Serious: Yes (Death, Hospitalization)
  Sender: FDA-Public Use
  Company Number: 200320430US

PATIENT
  Sex: Male

DRUGS (29)
  1. ARAVA [Suspect]
     Indication: RHEUMATOID ARTHRITIS
  2. AZULFIDINE [Concomitant]
     Indication: RHEUMATOID ARTHRITIS
  3. PLAQUENIL [Concomitant]
     Indication: RHEUMATOID ARTHRITIS
  4. PREDNISONE [Concomitant]
  5. FOLIC ACID [Concomitant]
  6. RELAFEN [Concomitant]
     Indication: RHEUMATOID ARTHRITIS
  7. ZESTRIL [Concomitant]
     Indication: HYPERTENSION
  8. VICODIN [Concomitant]
     Dosage: DOSE: UNK
  9. ZANAFLEX [Concomitant]
  10. ECOTRIN [Concomitant]
  11. GLYBURIDE [Concomitant]
     Indication: DIABETES MELLITUS
  12. METFORMIN [Concomitant]
     Indication: DIABETES MELLITUS
  13. PEPCID [Concomitant]
     Dosage: DOSE: UNK
  14. FOSAMAX [Concomitant]
     Dosage: DOSE: UNK
  15. PREVACID [Concomitant]
     Dosage: DOSE: UNK
  16. PRED FORTE [Concomitant]
     Dosage: DOSE: UNK
  17. SOMA [Concomitant]
     Dosage: DOSE: UNK
  18. SPORANOX [Concomitant]
     Dosage: DOSE: UNK
  19. AUGMENTIN [Concomitant]
     Dosage: DOSE: UNK
  20. CIPRO [Concomitant]
     Dosage: DOSE: UNK
  21. LEVAQUIN [Concomitant]
     Dosage: DOSE: UNK
  22. PENLAC [Concomitant]
     Dosage: DOSE: UNK
  23. DARVOCET-N 100 [Concomitant]
     Dosage: DOSE: UNK
  24. TENORMIN [Concomitant]
     Dosage: DOSE: UNK
  25. NITROSTAT [Concomitant]
     Dosage: DOSE: UNK
  26. LOPRESSOR [Concomitant]
     Dosage: DOSE: UNK
  27. LIPITOR [Concomitant]
     Dosage: DOSE: UNK
  28. CLARITIN [Concomitant]
     Dosage: DOSE: UNK
  29. ALLOPURINOL [Concomitant]
     Dosage: DOSE: UNK

REACTIONS (36)
  - ABDOMINAL PAIN UPPER [None]
  - ANAEMIA [None]
  - APNOEA [None]
  - ASPARTATE AMINOTRANSFERASE INCREASED [None]
  - BLOOD ALKALINE PHOSPHATASE INCREASED [None]
  - BLOOD GLUCOSE FLUCTUATION [None]
  - CARDIAC FAILURE CONGESTIVE [None]
  - CATARACT [None]
  - CELLULITIS [None]
  - CHEST PAIN [None]
  - CONFUSIONAL STATE [None]
  - CORONARY ARTERY DISEASE [None]
  - DISCOMFORT [None]
  - DISORIENTATION [None]
  - DUODENAL NEOPLASM [None]
  - GASTRIC ULCER [None]
  - HYPERHIDROSIS [None]
  - HYPOGLYCAEMIA [None]
  - HYPOVOLAEMIA [None]
  - LYMPHADENOPATHY [None]
  - MOUTH ULCERATION [None]
  - NON-HODGKIN'S LYMPHOMA [None]
  - ODYNOPHAGIA [None]
  - PEPTIC ULCER [None]
  - POLYNEUROPATHY [None]
  - POST PROCEDURAL COMPLICATION [None]
  - PROSTATE CANCER [None]
  - PSYCHOTIC DISORDER [None]
  - PULSE ABSENT [None]
  - PUPIL FIXED [None]
  - RASH PRURITIC [None]
  - RECTAL HAEMORRHAGE [None]
  - SEPSIS [None]
  - SQUAMOUS CELL CARCINOMA [None]
  - THROMBOCYTOPENIA [None]
  - UPPER GASTROINTESTINAL HAEMORRHAGE [None]
